FAERS Safety Report 4963588-8 (Version None)
Quarter: 2006Q2

REPORT INFORMATION
  Report Type: 
  Country: None (occurrence: None)
  Receive Date: 20060405
  Receipt Date: 20060110
  Transmission Date: 20061013
  Serious: Yes (Hospitalization)
  Sender: FDA-Public Use
  Company Number: US-AVENTIS-200610411US

PATIENT
  Sex: Female

DRUGS (6)
  1. KETEK [Suspect]
     Indication: PNEUMONIA PRIMARY ATYPICAL
     Route: 048
     Dates: start: 20051226, end: 20051230
  2. CELEBREX [Concomitant]
     Indication: OSTEOARTHRITIS
  3. PLAVIX [Concomitant]
     Indication: PERIPHERAL VASCULAR DISORDER
  4. LIPITOR [Concomitant]
     Indication: BLOOD CHOLESTEROL INCREASED
  5. DETROL [Concomitant]
     Indication: INCONTINENCE
  6. NEURONTIN [Concomitant]
     Indication: NEUROPATHY

REACTIONS (7)
  - ALANINE AMINOTRANSFERASE INCREASED [None]
  - ASPARTATE AMINOTRANSFERASE INCREASED [None]
  - ASTHENIA [None]
  - BLOOD ALKALINE PHOSPHATASE INCREASED [None]
  - DIARRHOEA [None]
  - FATIGUE [None]
  - HEPATITIS [None]
